FAERS Safety Report 15330141 (Version 1)
Quarter: 2018Q3

REPORT INFORMATION
  Report Type: Spontaneous
  Country: US (occurrence: US)
  Receive Date: 20180824
  Receipt Date: 20180824
  Transmission Date: 20181010
  Serious: Yes (Disabling, Other)
  Sender: FDA-Public Use
  Company Number: None

PATIENT
  Age: 34 Year
  Sex: Female
  Weight: 64.35 kg

DRUGS (4)
  1. RED RASPBERRY LEAF [Concomitant]
  2. VITAMIN D [Concomitant]
     Active Substance: CHOLECALCIFEROL
  3. MIRENA [Suspect]
     Active Substance: LEVONORGESTREL
     Indication: CONTRACEPTION
     Dosage: ?          QUANTITY:1 INTRAUTERINE DEVIC;OTHER FREQUENCY:5 YEARS;?
     Route: 067
     Dates: start: 20180724, end: 20180821
  4. PROBIOTICS [Concomitant]
     Active Substance: PROBIOTICS NOS

REACTIONS (29)
  - Vaginal haemorrhage [None]
  - Alopecia [None]
  - Insomnia [None]
  - Muscle tightness [None]
  - Oropharyngeal pain [None]
  - Lacrimation increased [None]
  - Decreased appetite [None]
  - Mastitis [None]
  - Sleep terror [None]
  - Sneezing [None]
  - Muscle atrophy [None]
  - Petechiae [None]
  - Hypertension [None]
  - Abdominal pain [None]
  - Pain in extremity [None]
  - Paraesthesia [None]
  - Suppressed lactation [None]
  - Bruxism [None]
  - Cough [None]
  - Headache [None]
  - Acne cystic [None]
  - Fatigue [None]
  - Anxiety [None]
  - Joint noise [None]
  - Paranasal sinus discomfort [None]
  - Hypoaesthesia [None]
  - Arthralgia [None]
  - Hallucination [None]
  - Tinnitus [None]

NARRATIVE: CASE EVENT DATE: 20180724
